FAERS Safety Report 6991744-6 (Version None)
Quarter: 2010Q3

REPORT INFORMATION
  Report Type: 
  Country: None (occurrence: None)
  Receive Date: 20100917
  Receipt Date: 20100913
  Transmission Date: 20110219
  Serious: Yes (Death, Hospitalization)
  Sender: FDA-Public Use
  Company Number: PHHY2010BR61076

PATIENT
  Sex: Female

DRUGS (2)
  1. EXELON [Suspect]
     Indication: DEMENTIA ALZHEIMER'S TYPE
     Dosage: 18MG/10CM2
     Route: 062
     Dates: start: 20080101
  2. INSULIN [Concomitant]
     Indication: DIABETES MELLITUS
     Dosage: 1 IU, QD
     Route: 058
     Dates: start: 20000101

REACTIONS (2)
  - DIABETIC COMPLICATION [None]
  - RENAL FAILURE [None]
